FAERS Safety Report 10251020 (Version 1)
Quarter: 2014Q2

REPORT INFORMATION
  Report Type: Spontaneous
  Country: US (occurrence: US)
  Receive Date: 20140620
  Receipt Date: 20140620
  Transmission Date: 20141212
  Serious: Yes (Other)
  Sender: FDA-Public Use
  Company Number: US-BAYER-2014-090674

PATIENT
  Age: 57 Year
  Sex: Male

DRUGS (1)
  1. XOFIGO [Suspect]
     Indication: BONE CANCER
     Dosage: ^22 ML^
     Dates: start: 20140613

REACTIONS (2)
  - Arthralgia [Recovering/Resolving]
  - Musculoskeletal chest pain [Not Recovered/Not Resolved]
